FAERS Safety Report 9070597 (Version 2)
Quarter: 2013Q2

REPORT INFORMATION
  Report Type: Spontaneous
  Country: US (occurrence: US)
  Receive Date: 20130206
  Receipt Date: 20130410
  Transmission Date: 20140414
  Serious: Yes (Hospitalization, Other)
  Sender: FDA-Public Use
  Company Number: US-009507513-2011SP034943

PATIENT
  Sex: Female
  Weight: 58.97 kg

DRUGS (2)
  1. NUVARING [Suspect]
     Indication: CONTRACEPTION
     Dosage: UNK
     Dates: start: 200801, end: 20090724
  2. HOMEOPATHIC MEDICATIONS (UNSPECIFIED) [Concomitant]
     Indication: PRODUCT USED FOR UNKNOWN INDICATION

REACTIONS (6)
  - Nephrolithiasis [Unknown]
  - Pulmonary embolism [Unknown]
  - Arthralgia [Unknown]
  - Swelling [Unknown]
  - Antiphospholipid antibodies positive [Unknown]
  - Constipation [Unknown]
